FAERS Safety Report 16275205 (Version 1)
Quarter: 2019Q2

REPORT INFORMATION
  Report Type: Report from Study
  Country: GB (occurrence: GB)
  Receive Date: 20190504
  Receipt Date: 20190504
  Transmission Date: 20190711
  Serious: Yes (Other)
  Sender: FDA-Public Use
  Company Number: PHHY2018GB003711

PATIENT
  Sex: Female

DRUGS (2)
  1. COSENTYX [Suspect]
     Active Substance: SECUKINUMAB
     Indication: PSORIASIS
     Dosage: 300 MG, Q4W
     Route: 058
     Dates: start: 201804
  2. COSENTYX [Suspect]
     Active Substance: SECUKINUMAB
     Dosage: 300 MG, Q4W
     Route: 058
     Dates: start: 20180509

REACTIONS (6)
  - Malaise [Unknown]
  - Viral pharyngitis [Unknown]
  - Nasopharyngitis [Unknown]
  - Lower respiratory tract infection viral [Unknown]
  - Oropharyngeal discomfort [Unknown]
  - Tonsillitis [Unknown]
